FAERS Safety Report 18046171 (Version 1)
Quarter: 2020Q3

REPORT INFORMATION
  Report Type: Spontaneous
  Country: JP (occurrence: JP)
  Receive Date: 20200720
  Receipt Date: 20200720
  Transmission Date: 20201103
  Serious: Yes (Death, Life-Threatening, Hospitalization, Other)
  Sender: FDA-Public Use
  Company Number: JP-BAYER-2020-035847

PATIENT
  Age: 68 Year
  Sex: Male
  Weight: 62 kg

DRUGS (2)
  1. STIVARGA [Suspect]
     Active Substance: REGORAFENIB
     Indication: COLON CANCER RECURRENT
     Dosage: 3 TABLETS/DAY, 3 WEEKS CONTINUOUS ADMINISTRATION, 1 WEEK OFF
     Route: 048
     Dates: start: 20200106, end: 20200126
  2. VALSARTAN. [Concomitant]
     Active Substance: VALSARTAN
     Dosage: 80 MG/DAY
     Route: 048

REACTIONS (5)
  - Off label use [None]
  - Tumour perforation [Recovered/Resolved]
  - Abdominal pain [Recovered/Resolved]
  - Peritonitis [None]
  - Colon cancer recurrent [Fatal]

NARRATIVE: CASE EVENT DATE: 20200131
